FAERS Safety Report 8837031 (Version 1)
Quarter: 2012Q4

REPORT INFORMATION
  Report Type: Spontaneous
  Country: US (occurrence: None)
  Receive Date: 20121010
  Receipt Date: 20121010
  Transmission Date: 20130627
  Serious: Yes (Hospitalization)
  Sender: FDA-Public Use
  Company Number: USA/USA/12/0026136

PATIENT
  Age: 20 Year
  Sex: Male

DRUGS (8)
  1. QUETIAPINE FUMARATE [Suspect]
     Indication: ANXIETY
  2. QUETIAPINE FUMARATE [Suspect]
     Indication: DEPRESSION
  3. ESCITALOPRAM [Suspect]
     Indication: ANXIETY
  4. ESCITALOPRAM [Suspect]
     Indication: DEPRESSION
  5. CLONAZEPAM [Suspect]
     Indication: ANXIETY
  6. CLONAZEPAM [Suspect]
     Indication: DEPRESSION
  7. PERCOCET /00446701/ [Suspect]
     Indication: ABDOMINAL PAIN
  8. COCAINE [Suspect]
     Indication: DRUG USE FOR UNKNOWN INDICATION

REACTIONS (21)
  - Intentional overdose [None]
  - Serotonin syndrome [None]
  - Abdominal pain [None]
  - Depressed mood [None]
  - Condition aggravated [None]
  - Medication error [None]
  - Mental status changes [None]
  - Agitation [None]
  - Intentional drug misuse [None]
  - Disorientation [None]
  - Lethargy [None]
  - Communication disorder [None]
  - Tachycardia [None]
  - Hyperthermia [None]
  - Hypopnoea [None]
  - Hyperhidrosis [None]
  - Anxiety [None]
  - Hyperreflexia [None]
  - Myoclonus [None]
  - Muscle rigidity [None]
  - Oxygen saturation decreased [None]
